FAERS Safety Report 9678080 (Version 1)
Quarter: 2013Q4

REPORT INFORMATION
  Report Type: Spontaneous
  Country: GB (occurrence: None)
  Receive Date: 20131106
  Receipt Date: 20131106
  Transmission Date: 20140711
  Serious: Yes (Disabling)
  Sender: FDA-Public Use
  Company Number: SYM-2013-11346

PATIENT
  Sex: Male

DRUGS (2)
  1. TIMOPTOL [Suspect]
     Indication: GLAUCOMA
     Route: 047
  2. XALATAN [Suspect]
     Indication: GLAUCOMA

REACTIONS (1)
  - Anosmia [None]
